FAERS Safety Report 5446118-6 (Version None)
Quarter: 2007Q3

REPORT INFORMATION
  Report Type: 
  Country: None (occurrence: None)
  Receive Date: 20070907
  Receipt Date: 20070831
  Transmission Date: 20080115
  Serious: Yes (Other)
  Sender: FDA-Public Use
  Company Number: US-BAYER-200712824BCC

PATIENT
  Sex: Female
  Weight: 84 kg

DRUGS (2)
  1. GENUINE BAYER ASPIRIN 325 MG [Suspect]
     Indication: DRUG USE FOR UNKNOWN INDICATION
     Dosage: TOTAL DAILY DOSE: 325 MG  UNIT DOSE: 325 MG
     Route: 048
  2. LIPITOR [Concomitant]

REACTIONS (1)
  - DEAFNESS UNILATERAL [None]
